FAERS Safety Report 4889801-3 (Version None)
Quarter: 2006Q1

REPORT INFORMATION
  Report Type: 
  Country: None (occurrence: None)
  Receive Date: 20060120
  Receipt Date: 20060105
  Transmission Date: 20060701
  Serious: Yes (Hospitalization)
  Sender: FDA-Public Use
  Company Number: DSA_60508_2005

PATIENT
  Age: 69 Year
  Sex: Male
  Weight: 83.4619 kg

DRUGS (11)
  1. MYSOLINE [Suspect]
     Dosage: DF ONCE PO
     Route: 048
     Dates: start: 20050825, end: 20050825
  2. MYSOLINE [Suspect]
     Indication: CONVULSION
     Dosage: DF PO
     Route: 048
  3. ABILIFY [Concomitant]
  4. ASPIRIN [Concomitant]
  5. FOLIC ACID [Concomitant]
  6. LAMICTAL [Concomitant]
  7. M.V.I. [Concomitant]
  8. NEXIUM [Concomitant]
  9. NEFAZODONE HCL [Concomitant]
  10. ARTANE [Concomitant]
  11. SEROQUEL [Concomitant]

REACTIONS (2)
  - MENTAL STATUS CHANGES [None]
  - OVERDOSE [None]
